FAERS Safety Report 14314683 (Version 1)
Quarter: 2017Q4

REPORT INFORMATION
  Report Type: Spontaneous
  Country: US (occurrence: US)
  Receive Date: 20171221
  Receipt Date: 20171221
  Transmission Date: 20180321
  Serious: No
  Sender: FDA-Public Use
  Company Number: None

PATIENT
  Age: 76 Year
  Sex: Male

DRUGS (1)
  1. DUPIXENT [Suspect]
     Active Substance: DUPILUMAB
     Indication: DERMATITIS
     Dosage: ?          QUANTITY:1 INJECTION(S);OTHER FREQUENCY:EOW;?
     Route: 058

REACTIONS (3)
  - Eye pain [None]
  - Ocular discomfort [None]
  - Therapy cessation [None]
